FAERS Safety Report 5922510-8 (Version None)
Quarter: 2008Q4

REPORT INFORMATION
  Report Type: 
  Country: None (occurrence: None)
  Receive Date: 20081017
  Receipt Date: 20081009
  Transmission Date: 20090506
  Serious: Yes (Other)
  Sender: FDA-Public Use
  Company Number: PHHY2008JP22089

PATIENT
  Sex: Female

DRUGS (5)
  1. COMTAN [Interacting]
     Indication: DRUG EFFECT DECREASED
     Dosage: 100 MG, QID
     Route: 048
     Dates: start: 20080507
  2. COMTAN [Interacting]
     Indication: PARKINSON'S DISEASE
  3. AMARYL [Interacting]
     Indication: DIABETES MELLITUS
     Dosage: 1 MG DAILY
     Route: 048
  4. LEVODOPA [Suspect]
  5. STARSIS [Concomitant]
     Indication: DIABETES MELLITUS

REACTIONS (4)
  - HYPERHIDROSIS [None]
  - HYPOGLYCAEMIA [None]
  - PALPITATIONS [None]
  - THERAPEUTIC RESPONSE INCREASED [None]
